FAERS Safety Report 21905837 (Version 4)
Quarter: 2023Q1

REPORT INFORMATION
  Report Type: Spontaneous
  Country: CH (occurrence: CH)
  Receive Date: 20230124
  Receipt Date: 20230224
  Transmission Date: 20230418
  Serious: Yes (Death, Hospitalization, Other)
  Sender: FDA-Public Use
  Company Number: CH-IMMUNOCORE, LTD-2023-IMC-001345

PATIENT

DRUGS (1)
  1. TEBENTAFUSP [Suspect]
     Active Substance: TEBENTAFUSP
     Indication: Uveal melanoma
     Dosage: 20 MICROGRAM, SINGLE
     Dates: start: 20230107, end: 20230108

REACTIONS (8)
  - Cytokine release syndrome [Fatal]
  - Tachypnoea [Fatal]
  - Oxygen saturation decreased [Fatal]
  - Heart rate decreased [Fatal]
  - Hypotension [Fatal]
  - Chills [Fatal]
  - Pyrexia [Fatal]
  - Pain in extremity [Recovered/Resolved]

NARRATIVE: CASE EVENT DATE: 20230107
